FAERS Safety Report 17624528 (Version 1)
Quarter: 2020Q2

REPORT INFORMATION
  Report Type: Spontaneous
  Country: SA (occurrence: SA)
  Receive Date: 20200403
  Receipt Date: 20200403
  Transmission Date: 20200713
  Serious: Yes (Death, Hospitalization)
  Sender: FDA-Public Use
  Company Number: SA-BIOGEN-2020BI00856953

PATIENT
  Sex: Female

DRUGS (3)
  1. SPINRAZA [Suspect]
     Active Substance: NUSINERSEN
     Indication: SPINAL MUSCULAR ATROPHY
     Dosage: 4 LOADING DOSES, 1ST TO 3RD LOADING DOSE
     Route: 037
     Dates: start: 20180426
  2. SPINRAZA [Suspect]
     Active Substance: NUSINERSEN
     Dosage: MAINTENANCE DOSE EVERY 4 MONTHS AFTER 4 LOADING DOSES
     Route: 037
  3. SPINRAZA [Suspect]
     Active Substance: NUSINERSEN
     Dosage: 4 LOADING DOSES, 4TH LOADING DOSE
     Route: 037

REACTIONS (1)
  - Death [Fatal]
